FAERS Safety Report 5842189-3 (Version None)
Quarter: 2008Q3

REPORT INFORMATION
  Report Type: 
  Country: None (occurrence: None)
  Receive Date: 20080731
  Receipt Date: 20080515
  Transmission Date: 20090109
  Serious: No
  Sender: FDA-Public Use
  Company Number: US200805003327

PATIENT
  Age: 67 Year
  Sex: Female
  Weight: 134.2 kg

DRUGS (7)
  1. BYETTA [Suspect]
     Indication: TYPE 2 DIABETES MELLITUS
     Dosage: 5 UG, 2/D, SUBCUTANEOUS
     Route: 058
     Dates: start: 20080421
  2. METFORMIN HCL [Concomitant]
  3. GLIPIZIDE [Concomitant]
  4. ACTOS /USA/ (PIOGLITAZONE HYDROCHLORIDE) [Concomitant]
  5. LISINOPRIL /USA/ (LISINOPRIL) [Concomitant]
  6. SIMVASTATIN [Concomitant]
  7. EXENATIDE [Concomitant]

REACTIONS (9)
  - EAR CONGESTION [None]
  - MALAISE [None]
  - NASAL CONGESTION [None]
  - NASOPHARYNGITIS [None]
  - PYREXIA [None]
  - RHINORRHOEA [None]
  - SINUS CONGESTION [None]
  - SNEEZING [None]
  - WEIGHT DECREASED [None]
